FAERS Safety Report 19175191 (Version 1)
Quarter: 2021Q2

REPORT INFORMATION
  Report Type: Report from Study
  Country: US (occurrence: US)
  Receive Date: 20210423
  Receipt Date: 20210423
  Transmission Date: 20210717
  Serious: Yes (Life-Threatening, Disabling, Other)
  Sender: FDA-Public Use
  Company Number: US-EMD SERONO-E2B_80042576

PATIENT
  Age: 61 Year
  Sex: Male

DRUGS (2)
  1. REBIF [Suspect]
     Active Substance: INTERFERON BETA-1A
     Indication: MULTIPLE SCLEROSIS
     Route: 058
     Dates: start: 20110110
  2. REBIF [Suspect]
     Active Substance: INTERFERON BETA-1A
     Route: 058
     Dates: start: 20120926

REACTIONS (6)
  - Hypoglossal nerve disorder [Unknown]
  - Accessory nerve disorder [Unknown]
  - Tonsil cancer [Not Recovered/Not Resolved]
  - Tonsil cancer metastatic [Not Recovered/Not Resolved]
  - Dysphagia [Unknown]
  - Aspiration [Unknown]

NARRATIVE: CASE EVENT DATE: 20160616
